FAERS Safety Report 8825056 (Version 1)
Quarter: 2012Q4

REPORT INFORMATION
  Report Type: 
  Country: US (occurrence: US)
  Receive Date: 20121004
  Receipt Date: 20121004
  Transmission Date: 20130627
  Serious: Yes (Other)
  Sender: FDA-Public Use
  Company Number: US-JNJFOC-20120911735

PATIENT
  Age: 77 Year
  Sex: Female
  Weight: 58.97 kg

DRUGS (12)
  1. BENADRYL ALLERGY ULTRATAB [Suspect]
     Indication: SLEEP DISORDER THERAPY
     Route: 048
     Dates: start: 20120918
  2. FAMOTIDINE [Concomitant]
     Indication: GASTROOESOPHAGEAL REFLUX DISEASE
     Route: 065
  3. CALCIUM + D3 [Concomitant]
     Indication: MEDICAL DIET
     Route: 065
  4. GABAPENTIN [Concomitant]
     Indication: CONVULSION PROPHYLAXIS
     Route: 065
  5. GABAPENTIN [Concomitant]
     Indication: CONVULSION PROPHYLAXIS
     Route: 065
  6. VALPROIC ACID [Concomitant]
     Indication: CONVULSION PROPHYLAXIS
     Route: 065
     Dates: start: 2010
  7. LISINOPRIL [Concomitant]
     Indication: HYPERTENSION
     Route: 065
  8. CLOPIDOGREL [Concomitant]
     Indication: MYOCARDIAL INFARCTION
     Route: 065
  9. CLOPIDOGREL [Concomitant]
     Indication: CEREBROVASCULAR ACCIDENT PROPHYLAXIS
     Route: 065
  10. ATORVASTATIN [Concomitant]
     Indication: BLOOD CHOLESTEROL INCREASED
     Route: 065
     Dates: start: 2010
  11. AMLODIPINE [Concomitant]
     Indication: HYPERTENSION
     Route: 065
  12. ALPHAGAN EYE DROPS [Concomitant]
     Indication: CATARACT
     Route: 047

REACTIONS (2)
  - Blood pressure increased [Not Recovered/Not Resolved]
  - Off label use [Unknown]
